FAERS Safety Report 4848196-1 (Version None)
Quarter: 2005Q4

REPORT INFORMATION
  Report Type: 
  Country: None (occurrence: None)
  Receive Date: 20051206
  Receipt Date: 20051121
  Transmission Date: 20060501
  Serious: Yes (Life-Threatening, Hospitalization)
  Sender: FDA-Public Use
  Company Number: 002#4#2005-00374

PATIENT
  Age: 50 Year
  Sex: Female
  Weight: 79 kg

DRUGS (9)
  1. ROBAXIN [Suspect]
     Dosage: 1 ONCE, ORAL
     Route: 048
     Dates: start: 20050929, end: 20050929
  2. BIFEPRUNOX [Suspect]
     Indication: BIPOLAR I DISORDER
     Dosage: .25 MG, 1 IN 1 D; ORAL (SEE IMAGE)
     Route: 048
     Dates: start: 20050914, end: 20050914
  3. BIFEPRUNOX [Suspect]
     Indication: BIPOLAR I DISORDER
     Dosage: .25 MG, 1 IN 1 D; ORAL (SEE IMAGE)
     Route: 048
     Dates: start: 20050915, end: 20050928
  4. CYCLOBENZAPRINE HCL [Suspect]
     Dosage: 1 ONCE, ORAL
     Route: 048
     Dates: start: 20050929, end: 20050929
  5. DARVOCET-N 100 [Suspect]
     Dosage: 1 ONCE; ORAL
     Route: 048
     Dates: start: 20050929, end: 20050929
  6. TYLENOL W/ CODEINE NO. 3 [Suspect]
     Dosage: 1 ONCE; ORAL
     Route: 048
     Dates: start: 20050929, end: 20050929
  7. VITAMIN-AND MINERAL-COMPLEX [Concomitant]
  8. MULTIVITAMINS-FOR-WOMEN [Concomitant]
  9. GARLIC [Concomitant]

REACTIONS (9)
  - ABASIA [None]
  - ANXIETY [None]
  - DELUSION OF REFERENCE [None]
  - FEAR [None]
  - OVERDOSE [None]
  - PARANOIA [None]
  - PERSECUTORY DELUSION [None]
  - PSYCHOTIC DISORDER [None]
  - SUICIDE ATTEMPT [None]
